FAERS Safety Report 19030516 (Version 1)
Quarter: 2021Q1

REPORT INFORMATION
  Report Type: Report from Study
  Country: BR (occurrence: BR)
  Receive Date: 20210319
  Receipt Date: 20210319
  Transmission Date: 20210420
  Serious: Yes (Other)
  Sender: FDA-Public Use
  Company Number: NVSC2021BR061610

PATIENT
  Age: 54 Year
  Sex: Female

DRUGS (1)
  1. COSENTYX [Suspect]
     Active Substance: SECUKINUMAB
     Indication: PSORIATIC ARTHROPATHY
     Dosage: 300 MG, UNKNOWN
     Route: 065
     Dates: start: 20180309

REACTIONS (16)
  - Rash macular [Recovering/Resolving]
  - Pain in extremity [Recovering/Resolving]
  - Emotional distress [Recovering/Resolving]
  - Musculoskeletal stiffness [Recovering/Resolving]
  - Nerve compression [Recovering/Resolving]
  - Movement disorder [Recovering/Resolving]
  - Emotional disorder [Recovering/Resolving]
  - Cartilage injury [Recovering/Resolving]
  - Pain [Recovering/Resolving]
  - Stress [Recovering/Resolving]
  - Sadism [Recovering/Resolving]
  - Arthralgia [Recovering/Resolving]
  - Atrophy [Recovering/Resolving]
  - Visual impairment [Unknown]
  - Mobility decreased [Unknown]
  - Product dose omission issue [Unknown]

NARRATIVE: CASE EVENT DATE: 20180309
